FAERS Safety Report 22272825 (Version 1)
Quarter: 2023Q2

REPORT INFORMATION
  Report Type: Spontaneous
  Country: TH (occurrence: TH)
  Receive Date: 20230502
  Receipt Date: 20230502
  Transmission Date: 20230721
  Serious: Yes (Death, Life-Threatening, Hospitalization, Other)
  Sender: FDA-Public Use
  Company Number: TH-AMGEN-THASP2023073360

PATIENT

DRUGS (4)
  1. PROLIA [Suspect]
     Active Substance: DENOSUMAB
     Indication: Osteoporosis
     Dosage: UNK
     Route: 065
  2. WARFARIN [Concomitant]
     Active Substance: WARFARIN
     Indication: Product used for unknown indication
     Dosage: UNK
     Route: 065
  3. CALCIUM [Concomitant]
     Active Substance: CALCIUM
     Indication: Supplementation therapy
     Dosage: UNK
     Route: 065
  4. VITAMIN D [Concomitant]
     Active Substance: VITAMIN D NOS
     Indication: Supplementation therapy
     Dosage: UNK
     Route: 065

REACTIONS (15)
  - Septic shock [Fatal]
  - Sepsis [Fatal]
  - Cardiac arrest [Fatal]
  - Respiratory failure [Fatal]
  - Pneumonia klebsiella [Fatal]
  - Gastrointestinal haemorrhage [Fatal]
  - Shock haemorrhagic [Fatal]
  - Cardiac failure congestive [Fatal]
  - Urinary tract infection [Fatal]
  - Acute respiratory failure [Recovered/Resolved]
  - COVID-19 pneumonia [Unknown]
  - Decubitus ulcer [Unknown]
  - Fracture [Unknown]
  - Dyspnoea [Unknown]
  - Renal disorder [Unknown]
